FAERS Safety Report 5152590-1 (Version None)
Quarter: 2006Q4

REPORT INFORMATION
  Report Type: 
  Country: None (occurrence: None)
  Receive Date: 20061109
  Receipt Date: 20061030
  Transmission Date: 20070319
  Serious: Yes (Other)
  Sender: FDA-Public Use
  Company Number: 2006132578

PATIENT
  Age: 72 Year
  Sex: Male

DRUGS (3)
  1. REVATIO [Suspect]
     Indication: PULMONARY HYPERTENSION
     Dates: start: 20061001
  2. PREVISCAN (FLUINDIONE) [Concomitant]
  3. TRACLEER [Concomitant]

REACTIONS (1)
  - HAEMATURIA [None]
